FAERS Safety Report 12983643 (Version 1)
Quarter: 2016Q4

REPORT INFORMATION
  Report Type: Spontaneous
  Country: DK (occurrence: DK)
  Receive Date: 20161129
  Receipt Date: 20161129
  Transmission Date: 20170207
  Serious: Yes (Other)
  Sender: FDA-Public Use
  Company Number: DK-PFIZER INC-2016550761

PATIENT
  Age: 31 Year
  Sex: Female

DRUGS (1)
  1. MINPROSTIN [Suspect]
     Active Substance: DINOPROSTONE
     Indication: LABOUR INDUCTION
     Dosage: 3 MG, SINGLE, AS A ONE-TIME DOSE
     Route: 067
     Dates: start: 20161114, end: 20161114

REACTIONS (1)
  - Uterine hyperstimulation [Recovered/Resolved]

NARRATIVE: CASE EVENT DATE: 20161114
